FAERS Safety Report 13956913 (Version 1)
Quarter: 2017Q3

REPORT INFORMATION
  Report Type: Spontaneous
  Country: CN (occurrence: CN)
  Receive Date: 20170911
  Receipt Date: 20170911
  Transmission Date: 20171128
  Serious: Yes (Other)
  Sender: FDA-Public Use
  Company Number: CN-BAXTER-2017BAX031638

PATIENT
  Age: 60 Year
  Sex: Female
  Weight: 58 kg

DRUGS (9)
  1. 20% MANNITOL INJECTION [Suspect]
     Active Substance: MANNITOL
     Indication: DEHYDRATION
     Route: 041
     Dates: start: 20170508, end: 20170510
  2. COMPOUND TRIVITAMIN B FOR INJECTION (II) [Concomitant]
     Indication: SUPPLEMENTATION THERAPY
     Dosage: 2 VIALS
     Route: 041
     Dates: start: 20170508, end: 20170514
  3. DEXAMETHASONE SODIUM PHOSPHATE. [Suspect]
     Active Substance: DEXAMETHASONE SODIUM PHOSPHATE
     Indication: ANGIOEDEMA
  4. DEXAMETHASONE SODIUM PHOSPHATE. [Suspect]
     Active Substance: DEXAMETHASONE SODIUM PHOSPHATE
     Indication: MASS
  5. 20% MANNITOL INJECTION [Suspect]
     Active Substance: MANNITOL
     Indication: ANGIOEDEMA
  6. 20% MANNITOL INJECTION [Suspect]
     Active Substance: MANNITOL
     Indication: SWELLING
  7. DEXAMETHASONE SODIUM PHOSPHATE. [Suspect]
     Active Substance: DEXAMETHASONE SODIUM PHOSPHATE
     Indication: DEHYDRATION
     Route: 041
     Dates: start: 20170508, end: 20170510
  8. 20% MANNITOL INJECTION [Suspect]
     Active Substance: MANNITOL
     Indication: MASS
  9. DEXAMETHASONE SODIUM PHOSPHATE. [Suspect]
     Active Substance: DEXAMETHASONE SODIUM PHOSPHATE
     Indication: SWELLING

REACTIONS (2)
  - Pain [Recovering/Resolving]
  - Dyspnoea [Recovering/Resolving]

NARRATIVE: CASE EVENT DATE: 20170509
